FAERS Safety Report 4289289-X (Version None)
Quarter: 2004Q1

REPORT INFORMATION
  Report Type: 
  Country: None (occurrence: None)
  Receive Date: 20040206
  Receipt Date: 20040126
  Transmission Date: 20041129
  Serious: Yes (Death, Hospitalization)
  Sender: FDA-Public Use
  Company Number: 03P-144-0244050-00

PATIENT
  Age: 33 Year
  Sex: Male

DRUGS (5)
  1. KALETRA [Suspect]
     Indication: HIV INFECTION
     Dosage: PER ORAL
     Route: 048
     Dates: start: 20020523
  2. DIDANOSINE [Concomitant]
  3. STAVUDINE [Concomitant]
  4. DOXORUBICIN [Concomitant]
  5. TENOFOVIR [Concomitant]

REACTIONS (8)
  - DISSEMINATED INTRAVASCULAR COAGULATION [None]
  - GENERAL PHYSICAL HEALTH DETERIORATION [None]
  - GENERALISED OEDEMA [None]
  - HYPOTENSION [None]
  - OLIGURIA [None]
  - PYREXIA [None]
  - RENAL FAILURE [None]
  - SEPTIC SHOCK [None]
